FAERS Safety Report 8282647-8 (Version None)
Quarter: 2012Q2

REPORT INFORMATION
  Report Type: 
  Country: None (occurrence: None)
  Receive Date: 20120413
  Receipt Date: 20120410
  Transmission Date: 20120825
  Serious: No
  Sender: FDA-Public Use
  Company Number: US-PFIZER INC-2012089693

PATIENT
  Sex: Female

DRUGS (2)
  1. EFFEXOR XR [Suspect]
     Dosage: 60 MG, UNK
     Route: 048
  2. EFFEXOR XR [Suspect]
     Dosage: 30 MG, UNK

REACTIONS (2)
  - PALPITATIONS [None]
  - INJURY [None]
